FAERS Safety Report 6399311-2 (Version None)
Quarter: 2009Q4

REPORT INFORMATION
  Report Type: 
  Country: None (occurrence: None)
  Receive Date: 20091014
  Receipt Date: 20070920
  Transmission Date: 20100525
  Serious: Yes (Other)
  Sender: FDA-Public Use
  Company Number: US-ASTRAZENECA-2006UW26460

PATIENT
  Age: 15248 Day
  Sex: Male
  Weight: 114.3 kg

DRUGS (11)
  1. SEROQUEL [Suspect]
     Indication: INSOMNIA
     Dosage: 25 MG-200 MG AT NIGHT
     Route: 048
     Dates: start: 20041025
  2. SEROQUEL [Suspect]
     Indication: BIPOLAR DISORDER
     Dosage: 25 MG-200 MG AT NIGHT
     Route: 048
     Dates: start: 20041025
  3. SEROQUEL [Suspect]
     Indication: DEPRESSION
     Dosage: 25 MG-200 MG AT NIGHT
     Route: 048
     Dates: start: 20041025
  4. SEROQUEL [Suspect]
     Dosage: 200 TO 600 MG
     Route: 048
  5. SEROQUEL [Suspect]
     Dosage: 200 TO 600 MG
     Route: 048
  6. SEROQUEL [Suspect]
     Dosage: 200 TO 600 MG
     Route: 048
  7. ZOCOR [Concomitant]
     Dates: start: 20041119
  8. METOPROLOL [Concomitant]
     Dates: start: 20041219
  9. TRAZODONE [Concomitant]
     Indication: SLEEP DISORDER
     Dosage: 300 MG-600 MG AT NIGHT
     Dates: start: 20050420
  10. BUPROPION HCL [Concomitant]
     Indication: DEPRESSION
     Dosage: 400 MG-450 MG DAILY
     Dates: start: 20050422
  11. GABAPENTIN [Concomitant]
     Indication: PAIN
     Dates: start: 20050420

REACTIONS (4)
  - DIABETES MELLITUS [None]
  - INTENTIONAL OVERDOSE [None]
  - NEUROPATHY PERIPHERAL [None]
  - TYPE 2 DIABETES MELLITUS [None]
